FAERS Safety Report 5643421-1 (Version None)
Quarter: 2008Q1

REPORT INFORMATION
  Report Type: 
  Country: None (occurrence: None)
  Receive Date: 20080228
  Receipt Date: 20080217
  Transmission Date: 20080703
  Serious: Yes (Hospitalization)
  Sender: FDA-Public Use
  Company Number: US-ELI_LILLY_AND_COMPANY-US200802003821

PATIENT
  Sex: Female

DRUGS (3)
  1. CYMBALTA [Suspect]
     Indication: DEPRESSION
     Dosage: 60 MG, DAILY (1/D)
     Dates: start: 20060801
  2. SEROQUEL [Concomitant]
  3. GLUCOPHAGE [Concomitant]

REACTIONS (2)
  - HYPERHIDROSIS [None]
  - UNRESPONSIVE TO STIMULI [None]
